FAERS Safety Report 8077583-6 (Version None)
Quarter: 2012Q1

REPORT INFORMATION
  Report Type: 
  Country: None (occurrence: None)
  Receive Date: 20120123
  Receipt Date: 20120109
  Transmission Date: 20120608
  Serious: No
  Sender: FDA-Public Use
  Company Number: 2012MA000649

PATIENT
  Age: 47 Year
  Sex: Female
  Weight: 33 kg

DRUGS (5)
  1. FEVERALL [Suspect]
  2. NAPROXEN [Suspect]
  3. RANITIDINE [Suspect]
  4. GABAPENTIN [Suspect]
  5. CYCLIZINE (CYCLIZINE) [Suspect]

REACTIONS (5)
  - HYPOPHAGIA [None]
  - HYPOKALAEMIA [None]
  - LETHARGY [None]
  - NEPHROPATHY [None]
  - ANOREXIA NERVOSA [None]
